FAERS Safety Report 10536171 (Version 2)
Quarter: 2014Q4

REPORT INFORMATION
  Report Type: Spontaneous
  Country: US (occurrence: US)
  Receive Date: 20141022
  Receipt Date: 20141022
  Transmission Date: 20150529
  Serious: Yes (Death)
  Sender: FDA-Public Use
  Company Number: US-RECKITT BENCKISER PHARMACEUTICAL, INC-RB-64356-2014

PATIENT

DRUGS (5)
  1. HEROIN [Suspect]
     Active Substance: DIACETYLMORPHINE
     Indication: DRUG DEPENDENCE
     Dosage: DOSING DETAILS UNKNOWN
     Route: 065
     Dates: end: 201403
  2. SUBOXONE [Suspect]
     Active Substance: BUPRENORPHINE HYDROCHLORIDE\NALOXONE HYDROCHLORIDE
     Dosage: SUBOXONE FILM, DOSING DETAILS UNKNOWN
     Route: 048
     Dates: start: 20120313
  3. SUBOXONE [Suspect]
     Active Substance: BUPRENORPHINE HYDROCHLORIDE\NALOXONE HYDROCHLORIDE
     Indication: DRUG DEPENDENCE
     Dosage: SUBOXONE FILM
     Route: 048
     Dates: start: 20110128, end: 201201
  4. SUBOXONE [Suspect]
     Active Substance: BUPRENORPHINE HYDROCHLORIDE\NALOXONE HYDROCHLORIDE
     Dosage: SUBOXONE FILM
     Route: 048
     Dates: start: 20130817, end: 201403
  5. BUPROPION [Concomitant]
     Active Substance: BUPROPION
     Indication: MAJOR DEPRESSION
     Dosage: DOSING DETAILS UNKNOWN
     Route: 065

REACTIONS (4)
  - Incorrect route of drug administration [Recovered/Resolved]
  - Overdose [Fatal]
  - Drug dependence [Fatal]
  - Drug abuse [Recovered/Resolved]

NARRATIVE: CASE EVENT DATE: 20110128
